FAERS Safety Report 14879960 (Version 2)
Quarter: 2018Q2

REPORT INFORMATION
  Report Type: Spontaneous
  Country: AU (occurrence: AU)
  Receive Date: 20180511
  Receipt Date: 20180514
  Transmission Date: 20180711
  Serious: Yes (Death, Life-Threatening, Other)
  Sender: FDA-Public Use
  Company Number: PHHY2018AU005377

PATIENT
  Age: 6 Year
  Sex: Female
  Weight: 39 kg

DRUGS (2)
  1. EXJADE [Suspect]
     Active Substance: DEFERASIROX
     Indication: IRON OVERLOAD
     Dosage: 750 MG, QD (20 MG/KG)
     Route: 048
     Dates: start: 201111
  2. VITAMIN D [Concomitant]
     Active Substance: CHOLECALCIFEROL
     Indication: PRODUCT USED FOR UNKNOWN INDICATION
     Dosage: 1 DF, QD
     Route: 048

REACTIONS (4)
  - Intestinal perforation [Fatal]
  - Abdominal pain upper [Unknown]
  - Gastric perforation [Recovered/Resolved]
  - Shock [Unknown]

NARRATIVE: CASE EVENT DATE: 201111
